FAERS Safety Report 7513794-3 (Version None)
Quarter: 2011Q2

REPORT INFORMATION
  Report Type: 
  Country: None (occurrence: None)
  Receive Date: 20110531
  Receipt Date: 20110524
  Transmission Date: 20111010
  Serious: Yes (Other)
  Sender: FDA-Public Use
  Company Number: PHHY2011IT45147

PATIENT
  Sex: Male

DRUGS (2)
  1. OXALIPLATIN [Suspect]
  2. LEUCOVORIN CALCIUM [Suspect]

REACTIONS (1)
  - NEUTROPENIA [None]
